FAERS Safety Report 25572302 (Version 2)
Quarter: 2025Q3

REPORT INFORMATION
  Report Type: Report from Study
  Country: US (occurrence: US)
  Receive Date: 20250717
  Receipt Date: 20250723
  Transmission Date: 20251021
  Serious: Yes (Hospitalization, Other)
  Sender: GALDERMA
  Company Number: US-GALDERMA-US2025012368

PATIENT

DRUGS (1)
  1. NEMOLIZUMAB [Suspect]
     Active Substance: NEMOLIZUMAB
     Indication: Neurodermatitis
     Route: 058

REACTIONS (4)
  - Pneumonia [Recovering/Resolving]
  - Sepsis [Recovering/Resolving]
  - Pneumothorax [Recovering/Resolving]
  - Inappropriate schedule of product administration [Recovered/Resolved]
